FAERS Safety Report 9556183 (Version 1)
Quarter: 2013Q3

REPORT INFORMATION
  Report Type: Spontaneous
  Country: US (occurrence: None)
  Receive Date: 20130724
  Receipt Date: 20130724
  Transmission Date: 20140515
  Serious: No
  Sender: FDA-Public Use
  Company Number: PHEH2013US006582

PATIENT
  Sex: Female
  Weight: 86.2 kg

DRUGS (3)
  1. GILENYA (FINGOLIMOD) CAPSULE, 0.5MG [Suspect]
     Indication: MULTIPLE SCLEROSIS
     Route: 048
     Dates: start: 20130130
  2. BUPROPION [Concomitant]
  3. Z-PAK (AZITHROMYCIN) [Concomitant]

REACTIONS (3)
  - Swelling face [None]
  - Asthenopia [None]
  - Throat irritation [None]
